FAERS Safety Report 24760613 (Version 1)
Quarter: 2024Q4

REPORT INFORMATION
  Report Type: Spontaneous
  Country: CZ (occurrence: CZ)
  Receive Date: 20241220
  Receipt Date: 20241220
  Transmission Date: 20250114
  Serious: Yes (Other)
  Sender: ROCHE
  Company Number: CZ-BoehringerIngelheim-2024-BI-068323

PATIENT
  Sex: Male

DRUGS (1)
  1. ALTEPLASE [Suspect]
     Active Substance: ALTEPLASE
     Indication: Subclavian vein thrombosis
     Route: 065

REACTIONS (2)
  - Subclavian vein occlusion [Recovered/Resolved]
  - Off label use [Unknown]
